FAERS Safety Report 11185547 (Version 2)
Quarter: 2015Q3

REPORT INFORMATION
  Report Type: Report from Study
  Country: BR (occurrence: BR)
  Receive Date: 20150612
  Receipt Date: 20150730
  Transmission Date: 20151125
  Serious: Yes (Other)
  Sender: FDA-Public Use
  Company Number: BR-BIOGENIDEC-2015BI079110

PATIENT
  Age: 39 Year
  Sex: Female

DRUGS (1)
  1. AVONEX [Suspect]
     Active Substance: INTERFERON BETA-1A
     Indication: MULTIPLE SCLEROSIS
     Route: 030
     Dates: start: 20120110

REACTIONS (4)
  - Injection site reaction [Not Recovered/Not Resolved]
  - Lack of injection site rotation [Unknown]
  - Fibula fracture [Recovered/Resolved with Sequelae]
  - Influenza like illness [Recovered/Resolved]

NARRATIVE: CASE EVENT DATE: 20130101
